FAERS Safety Report 7242643-6 (Version None)
Quarter: 2011Q1

REPORT INFORMATION
  Report Type: 
  Country: None (occurrence: None)
  Receive Date: 20110125
  Receipt Date: 20110117
  Transmission Date: 20110831
  Serious: No
  Sender: FDA-Public Use
  Company Number: US-US-EMD SERONO, INC.-7030762

PATIENT
  Sex: Female
  Weight: 102 kg

DRUGS (8)
  1. REBIF [Suspect]
     Indication: MULTIPLE SCLEROSIS
     Route: 058
     Dates: end: 20100401
  2. ASPIRIN [Concomitant]
     Indication: CEREBROVASCULAR ACCIDENT
  3. AMBIEN [Concomitant]
     Indication: INSOMNIA
     Dates: start: 20100101
  4. REBIF [Suspect]
     Route: 058
     Dates: start: 20100401, end: 20101201
  5. REBIF [Suspect]
     Route: 058
     Dates: start: 20101201
  6. NUVIGIL [Concomitant]
     Indication: FATIGUE
     Dates: start: 20101201
  7. ASPIRIN [Concomitant]
     Indication: VENOUS INSUFFICIENCY
     Dates: start: 20091201
  8. IBUPROFEN [Concomitant]
     Indication: PREMEDICATION

REACTIONS (16)
  - ANXIETY [None]
  - DRY MOUTH [None]
  - PALPITATIONS [None]
  - ASTHENIA [None]
  - DEPRESSED MOOD [None]
  - INSOMNIA [None]
  - FATIGUE [None]
  - DYSPNOEA [None]
  - DISTURBANCE IN ATTENTION [None]
  - LOW DENSITY LIPOPROTEIN ABNORMAL [None]
  - ALOPECIA [None]
  - HEPATIC ENZYME INCREASED [None]
  - HYPERTENSION [None]
  - DIZZINESS [None]
  - NAUSEA [None]
  - CERUMEN IMPACTION [None]
